FAERS Safety Report 10840227 (Version 1)
Quarter: 2015Q1

REPORT INFORMATION
  Report Type: Spontaneous
  Country: US (occurrence: US)
  Receive Date: 20150220
  Receipt Date: 20150220
  Transmission Date: 20150721
  Serious: No
  Sender: FDA-Public Use
  Company Number: US-ABBVIE-14P-163-1245781-00

PATIENT
  Sex: Female
  Weight: 58.11 kg

DRUGS (6)
  1. CELLCEPT [Concomitant]
     Active Substance: MYCOPHENOLATE MOFETIL\MYCOPHENOLATE MOFETIL HYDROCHLORIDE
     Indication: PRODUCT USED FOR UNKNOWN INDICATION
  2. BRIMONIDINE [Concomitant]
     Active Substance: BRIMONIDINE\BRIMONIDINE TARTRATE
     Indication: PRODUCT USED FOR UNKNOWN INDICATION
     Route: 047
  3. LIDOCAINE. [Suspect]
     Active Substance: LIDOCAINE
     Indication: PRODUCT USED FOR UNKNOWN INDICATION
  4. UNKNOWN EYE DROPS [Concomitant]
     Active Substance: UNSPECIFIED INGREDIENT
     Indication: PRODUCT USED FOR UNKNOWN INDICATION
     Route: 047
  5. COSOPT [Concomitant]
     Active Substance: DORZOLAMIDE HYDROCHLORIDE\TIMOLOL MALEATE
     Indication: PRODUCT USED FOR UNKNOWN INDICATION
     Route: 047
  6. HUMIRA [Suspect]
     Active Substance: ADALIMUMAB
     Indication: UVEITIS

REACTIONS (4)
  - Wrong technique in drug usage process [Not Recovered/Not Resolved]
  - Conjunctivitis [Recovering/Resolving]
  - Product use issue [Unknown]
  - Uveitis [Recovering/Resolving]
